FAERS Safety Report 17823453 (Version 1)
Quarter: 2020Q2

REPORT INFORMATION
  Report Type: Spontaneous
  Country: US (occurrence: US)
  Receive Date: 20200524
  Receipt Date: 20200524
  Transmission Date: 20200714
  Serious: Yes (Life-Threatening, Hospitalization, Disabling, Other)
  Sender: FDA-Public Use
  Company Number: None

PATIENT
  Age: 63 Year
  Sex: Female
  Weight: 92.25 kg

DRUGS (29)
  1. AMLODIPINE BESYLATE. [Suspect]
     Active Substance: AMLODIPINE BESYLATE
     Indication: CARDIAC FAILURE CONGESTIVE
     Route: 048
  2. TIZANIDINE. [Concomitant]
     Active Substance: TIZANIDINE
  3. NASACORT [Concomitant]
     Active Substance: TRIAMCINOLONE ACETONIDE
  4. VITAMIN D [Concomitant]
     Active Substance: VITAMIN D NOS
  5. IBUPROFEN. [Concomitant]
     Active Substance: IBUPROFEN
  6. KNEE BRACE [Concomitant]
  7. PILL CUTTER [Concomitant]
  8. GABAPENTIN 100MG [Suspect]
     Active Substance: GABAPENTIN
     Indication: DIABETIC NEPHROPATHY
     Dosage: ?          QUANTITY:1 CAPSULE(S);?
     Route: 048
  9. ARIPRIZAOLE [Concomitant]
  10. BLOOD PRESSURE MONITOR [Concomitant]
  11. GLUCOSE MONITOR [Concomitant]
  12. TOPICAL ANALGESICCS [Concomitant]
  13. VITAMIN E [Concomitant]
     Active Substance: .ALPHA.-TOCOPHEROL
  14. LANTUS [Suspect]
     Active Substance: INSULIN GLARGINE
  15. LOSARTAN. [Concomitant]
     Active Substance: LOSARTAN
  16. WALKER [Concomitant]
  17. CETIRIZINE [Concomitant]
     Active Substance: CETIRIZINE HYDROCHLORIDE
  18. VITAMIN B COMPLEX [Concomitant]
     Active Substance: CYANOCOBALAMIN\DEXPANTHENOL\NIACINAMIDE\PYRIDOXINE HYDROCHLORIDE\RIBOFLAVIN 5^-PHOSPHATE SODIUM\THIAMINE HYDROCHLORIDE\VITAMIN B COMPLEX
  19. VITAMIN C [Concomitant]
     Active Substance: ASCORBIC ACID
  20. FERROUS GLUCONATE [Concomitant]
     Active Substance: FERROUS GLUCONATE
  21. METHOCARBAMOL. [Suspect]
     Active Substance: METHOCARBAMOL
  22. MELATONIN [Concomitant]
     Active Substance: MELATONIN
  23. BACLOFEN. [Concomitant]
     Active Substance: BACLOFEN
  24. ATORVASTATIN [Suspect]
     Active Substance: ATORVASTATIN
  25. NOVOLOG [Concomitant]
     Active Substance: INSULIN ASPART
  26. WRIST BRACE [Concomitant]
  27. CANE [Concomitant]
  28. POTASSIUM [Concomitant]
     Active Substance: POTASSIUM
  29. LORADATINE [Concomitant]

REACTIONS (10)
  - Drug ineffective [None]
  - Muscular weakness [None]
  - Gait inability [None]
  - Swelling [None]
  - Fall [None]
  - Pain [None]
  - Visual impairment [None]
  - Limb injury [None]
  - Abnormal behaviour [None]
  - Pain in extremity [None]

NARRATIVE: CASE EVENT DATE: 20190601
